FAERS Safety Report 5262716-7 (Version None)
Quarter: 2007Q1

REPORT INFORMATION
  Report Type: 
  Country: None (occurrence: None)
  Receive Date: 20070308
  Receipt Date: 20070222
  Transmission Date: 20070707
  Serious: Yes (Hospitalization)
  Sender: FDA-Public Use
  Company Number: 237027

PATIENT
  Age: 76 Year
  Sex: Female
  Weight: 75 kg

DRUGS (9)
  1. MABTHERA (RITUXIMAB) CONC FOR SOLUTION FOR INFUSION [Suspect]
     Indication: B-CELL LYMPHOMA
     Dosage: 375 MG/M2, INTRAVENOUS
     Route: 042
     Dates: start: 20060428
  2. ADRIAMYCIN PFS [Suspect]
     Indication: B-CELL LYMPHOMA
     Dosage: 50 MG/M2, Q2W, INTRAVENOUS
     Route: 042
     Dates: start: 20060429
  3. CYCLOPHOSPHAMIDE [Suspect]
     Indication: B-CELL LYMPHOMA
     Dosage: 750 MG/M2, Q2W, INTRAVENOUS
     Route: 042
     Dates: start: 20060429
  4. NEXIUM [Concomitant]
  5. NEURONTIN [Concomitant]
  6. L-THYROXIN 100 (LEVOTHYROXINE SODIUM) [Concomitant]
  7. LORAZEPAM [Concomitant]
  8. ACYCLOVIR SODIUM [Concomitant]
  9. KARVEZIDE (HYDROCHLOROTHIAZIDE, IRBESARTAN) [Concomitant]

REACTIONS (4)
  - IMPAIRED HEALING [None]
  - PYREXIA [None]
  - UNEVALUABLE EVENT [None]
  - URINARY TRACT INFECTION [None]
